FAERS Safety Report 22291211 (Version 2)
Quarter: 2024Q2

REPORT INFORMATION
  Report Type: Report from Study
  Country: EG (occurrence: EG)
  Receive Date: 20230506
  Receipt Date: 20240517
  Transmission Date: 20240716
  Serious: Yes (Other)
  Sender: FDA-Public Use
  Company Number: EG-002147023-NVSC2023EG099712

PATIENT
  Age: 27 Year
  Sex: Female
  Weight: 98 kg

DRUGS (6)
  1. COSENTYX [Suspect]
     Active Substance: SECUKINUMAB
     Indication: Psoriasis
     Dosage: 1 DOSAGE FORM, QW 1 PREFILLED DOSE WEEKLY FOR 1 MONTH AS AN OFF-LABEL LOADING DOSE)
     Route: 058
     Dates: start: 202006
  2. COSENTYX [Suspect]
     Active Substance: SECUKINUMAB
     Dosage: 1 DOSAGE FORM, QMO (1 PRE FILLED PEN FOR MONTHLY FOR 6 MONTHS)
     Route: 058
  3. COSENTYX [Suspect]
     Active Substance: SECUKINUMAB
     Dosage: 1 DOSAGE FORM, Q2MO (1 PREFILLED PEN EVERY 2 MONTHS)
     Route: 058
     Dates: end: 202301
  4. COSENTYX [Suspect]
     Active Substance: SECUKINUMAB
     Dosage: 1 DOSAGE FORM, QMO
     Route: 058
     Dates: end: 202302
  5. ASPIRIN [Concomitant]
     Active Substance: ASPIRIN
     Indication: Anticoagulant therapy
     Dosage: 1 DOSAGE FORM, QD
     Route: 065
     Dates: start: 202112
  6. ASPIRIN [Concomitant]
     Active Substance: ASPIRIN
     Dosage: 1 DOSAGE FORM, QD
     Route: 048
     Dates: start: 202202, end: 202309

REACTIONS (8)
  - Haematuria [Recovered/Resolved]
  - Blood electrolytes increased [Recovered/Resolved]
  - Red blood cell count increased [Recovered/Resolved]
  - White blood cells urine positive [Recovered/Resolved]
  - Rebound psoriasis [Not Recovered/Not Resolved]
  - Skin exfoliation [Unknown]
  - Inappropriate schedule of product administration [Unknown]
  - Off label use [Recovered/Resolved]

NARRATIVE: CASE EVENT DATE: 20220401
